FAERS Safety Report 19042484 (Version 1)
Quarter: 2021Q1

REPORT INFORMATION
  Report Type: Spontaneous
  Country: AU (occurrence: AU)
  Receive Date: 20210323
  Receipt Date: 20210323
  Transmission Date: 20210420
  Serious: Yes (Life-Threatening, Other)
  Sender: FDA-Public Use
  Company Number: AU-PFIZER INC-2021293969

PATIENT
  Age: 18 Year
  Sex: Male
  Weight: 82 kg

DRUGS (9)
  1. PETHIDINE [Concomitant]
     Active Substance: MEPERIDINE
     Dosage: 100 MG
  2. NEOSTIGMINE. [Concomitant]
     Active Substance: NEOSTIGMINE METHYLSULFATE
     Dosage: 2.5 MG
  3. SUXAMETHONIUM [Concomitant]
     Active Substance: SUCCINYLCHOLINE
     Dosage: 100 MG
  4. CEFOXITIN [Concomitant]
     Active Substance: CEFOXITIN SODIUM
     Dosage: 2 G
  5. ATROPINE. [Concomitant]
     Active Substance: ATROPINE
     Dosage: 1.2 MG
  6. ALCURONIUM. [Concomitant]
     Active Substance: ALCURONIUM
     Dosage: 20 MG
  7. NALOXONE HCL [Suspect]
     Active Substance: NALOXONE HYDROCHLORIDE
     Dosage: 0.4 MG
  8. THIOPENTONE [THIOPENTAL] [Concomitant]
     Active Substance: THIOPENTAL
     Dosage: 500 MG
  9. HALOTHANE. [Concomitant]
     Active Substance: HALOTHANE
     Dosage: UNK

REACTIONS (2)
  - Respiratory distress [Recovering/Resolving]
  - Pulmonary oedema [Recovering/Resolving]
